FAERS Safety Report 10365063 (Version 1)
Quarter: 2014Q3

REPORT INFORMATION
  Report Type: Spontaneous
  Country: US (occurrence: None)
  Receive Date: 20140804
  Receipt Date: 20140804
  Transmission Date: 20150326
  Serious: Yes (Other)
  Sender: FDA-Public Use
  Company Number: None

PATIENT
  Age: 55 Year
  Sex: Female
  Weight: 52.16 kg

DRUGS (3)
  1. CLARITIN [Concomitant]
     Active Substance: LORATADINE
  2. TRANSDERM SCOP [Suspect]
     Active Substance: SCOPOLAMINE
     Indication: PROPHYLAXIS
     Dates: start: 20140717, end: 20140730
  3. TRANSDERM SCOP [Suspect]
     Active Substance: SCOPOLAMINE
     Indication: MOTION SICKNESS
     Dates: start: 20140717, end: 20140730

REACTIONS (2)
  - Drug withdrawal syndrome [None]
  - Adverse reaction [None]

NARRATIVE: CASE EVENT DATE: 20140731
